FAERS Safety Report 14224676 (Version 1)
Quarter: 2017Q4

REPORT INFORMATION
  Report Type: Report from Study
  Country: GB (occurrence: GB)
  Receive Date: 20171127
  Receipt Date: 20171127
  Transmission Date: 20180321
  Serious: Yes (Hospitalization)
  Sender: FDA-Public Use
  Company Number: GB-AMGEN-GBRSL2017175844

PATIENT
  Sex: Male

DRUGS (1)
  1. ARANESP [Suspect]
     Active Substance: DARBEPOETIN ALFA
     Indication: RENAL DISORDER
     Dosage: 20 MUG, UNK
     Route: 065
     Dates: start: 2017

REACTIONS (1)
  - Malaise [Unknown]
